FAERS Safety Report 8330189-3 (Version None)
Quarter: 2012Q2

REPORT INFORMATION
  Report Type: 
  Country: None (occurrence: None)
  Receive Date: 20120430
  Receipt Date: 20120416
  Transmission Date: 20120825
  Serious: Yes (Death, Hospitalization)
  Sender: FDA-Public Use
  Company Number: POMP-1000287

PATIENT
  Age: 77 Year
  Sex: Male
  Weight: 71 kg

DRUGS (1)
  1. MYOZYME (ALGLUCOSIDASE ALFA) POWDER FOR SOLUTION FOR INFUSION, 2000L [Suspect]
     Indication: GLYCOGEN STORAGE DISEASE TYPE II
     Dosage: 20 MG/KG, Q2W, INTRAVENOUS
     Route: 042
     Dates: start: 20080701

REACTIONS (19)
  - CORYNEBACTERIUM INFECTION [None]
  - C-REACTIVE PROTEIN INCREASED [None]
  - CYANOSIS [None]
  - HYPOTENSION [None]
  - CULTURE WOUND POSITIVE [None]
  - DECUBITUS ULCER [None]
  - DRUG DOSE OMISSION [None]
  - OSTEOMYELITIS [None]
  - LEUKOCYTOSIS [None]
  - SKIN DISORDER [None]
  - IMPAIRED HEALING [None]
  - PRURITUS [None]
  - SKIN NECROSIS [None]
  - SINUS BRADYCARDIA [None]
  - SKIN ULCER [None]
  - REFUSAL OF TREATMENT BY PATIENT [None]
  - CARDIO-RESPIRATORY ARREST [None]
  - CARDIAC FAILURE [None]
  - SEPSIS [None]
